FAERS Safety Report 19722228 (Version 1)
Quarter: 2021Q3

REPORT INFORMATION
  Report Type: Spontaneous
  Country: US (occurrence: US)
  Receive Date: 20210819
  Receipt Date: 20210819
  Transmission Date: 20211014
  Serious: Yes (Other)
  Sender: FDA-Public Use
  Company Number: US-BAYER-2021-192327

PATIENT
  Age: 74 Year
  Sex: Female

DRUGS (8)
  1. OPSUMIT [Suspect]
     Active Substance: MACITENTAN
     Indication: PULMONARY ARTERIAL HYPERTENSION
     Dosage: UNK
     Route: 048
     Dates: start: 20210129
  2. SOTALOL. [Concomitant]
     Active Substance: SOTALOL
     Indication: ARRHYTHMIA
  3. ADEMPAS [Suspect]
     Active Substance: RIOCIGUAT
     Indication: PULMONARY ARTERIAL HYPERTENSION
     Dosage: UNK
     Route: 048
     Dates: start: 2021, end: 202107
  4. ELIQUIS [Concomitant]
     Active Substance: APIXABAN
     Indication: ATRIAL FIBRILLATION
  5. OPSUMIT [Suspect]
     Active Substance: MACITENTAN
     Indication: PULMONARY ARTERIAL HYPERTENSION
     Dosage: 10 MG, QD
     Dates: start: 20210225
  6. LASIX [Concomitant]
     Active Substance: FUROSEMIDE
     Indication: FLUID RETENTION
     Dosage: UNK UNK, BID
  7. SPIRONOLACTONE. [Concomitant]
     Active Substance: SPIRONOLACTONE
     Indication: FLUID RETENTION
  8. OPSUMIT [Suspect]
     Active Substance: MACITENTAN
     Indication: PULMONARY ARTERIAL HYPERTENSION
     Dosage: 10 MG, QD
     Dates: start: 20210227, end: 202107

REACTIONS (27)
  - Adverse event [None]
  - Joint swelling [Not Recovered/Not Resolved]
  - Diarrhoea [None]
  - Impaired gastric emptying [Not Recovered/Not Resolved]
  - Condition aggravated [None]
  - Thrombosis [Not Recovered/Not Resolved]
  - Nasal congestion [None]
  - Nausea [Not Recovered/Not Resolved]
  - Peripheral swelling [Not Recovered/Not Resolved]
  - Arthralgia [None]
  - Abdominal discomfort [None]
  - Dyspnoea [Not Recovered/Not Resolved]
  - Mobility decreased [None]
  - Weight abnormal [Not Recovered/Not Resolved]
  - Rhinitis allergic [Not Recovered/Not Resolved]
  - Oedema [None]
  - Abdominal pain upper [None]
  - Atrial fibrillation [None]
  - Malaise [None]
  - Paranasal sinus hypersecretion [Not Recovered/Not Resolved]
  - Productive cough [Not Recovered/Not Resolved]
  - Decreased appetite [Not Recovered/Not Resolved]
  - Vomiting [Not Recovered/Not Resolved]
  - Renal disorder [None]
  - Fluid retention [Not Recovered/Not Resolved]
  - Loss of personal independence in daily activities [None]
  - Wheelchair user [None]

NARRATIVE: CASE EVENT DATE: 202102
